FAERS Safety Report 18784484 (Version 1)
Quarter: 2021Q1

REPORT INFORMATION
  Report Type: Spontaneous
  Country: US (occurrence: US)
  Receive Date: 20210125
  Receipt Date: 20210125
  Transmission Date: 20210419
  Serious: No
  Sender: FDA-Public Use
  Company Number: US-ROCHE-2516695

PATIENT
  Age: 31 Year
  Sex: Female

DRUGS (2)
  1. RITUXAN [Suspect]
     Active Substance: RITUXIMAB
     Dosage: 1000 MG EVERY 2 WEEKS TWICE IN THE YEAR. (4000 MG)
     Route: 065
     Dates: start: 201809, end: 201909
  2. RITUXAN [Suspect]
     Active Substance: RITUXIMAB
     Indication: NEUROMYELITIS OPTICA SPECTRUM DISORDER
     Dosage: 1000 MG EVERY 6 MONTHS FOR THE FIRST YEAR.
     Route: 065
     Dates: start: 201709, end: 201809

REACTIONS (3)
  - Intentional product use issue [Unknown]
  - Off label use [Unknown]
  - No adverse event [Unknown]
